FAERS Safety Report 21016172 (Version 2)
Quarter: 2022Q4

REPORT INFORMATION
  Report Type: Spontaneous
  Country: JP (occurrence: JP)
  Receive Date: 20220628
  Receipt Date: 20221205
  Transmission Date: 20230112
  Serious: Yes (Other)
  Sender: FDA-Public Use
  Company Number: JP-NOVARTISPH-NVSJ2022JP093016

PATIENT
  Sex: Female

DRUGS (1)
  1. MAYZENT [Suspect]
     Active Substance: SIPONIMOD
     Indication: Multiple sclerosis
     Dosage: UNK
     Route: 048
     Dates: start: 20210525, end: 20210622

REACTIONS (2)
  - Multiple sclerosis [Unknown]
  - Diplegia [Unknown]
